FAERS Safety Report 20084054 (Version 1)
Quarter: 2021Q4

REPORT INFORMATION
  Report Type: Spontaneous
  Country: GB (occurrence: GB)
  Receive Date: 20211118
  Receipt Date: 20211118
  Transmission Date: 20220303
  Serious: Yes (Hospitalization, Other)
  Sender: FDA-Public Use
  Company Number: GB-ABBVIE-21K-167-4165445-00

PATIENT
  Age: 78 Year
  Sex: Male

DRUGS (1)
  1. VALPROATE SODIUM [Suspect]
     Active Substance: VALPROATE SODIUM
     Indication: Bipolar disorder
     Dosage: 200 MG IN MORNING AND 200 MG AT NIGHT.
     Route: 065

REACTIONS (8)
  - Unresponsive to stimuli [Unknown]
  - Enthesopathy [Unknown]
  - Fall [Unknown]
  - Hypophagia [Recovering/Resolving]
  - Mobility decreased [Unknown]
  - Confusional state [Unknown]
  - Depression [Unknown]
  - Irritability [Unknown]
